FAERS Safety Report 9858755 (Version 1)
Quarter: 2014Q1

REPORT INFORMATION
  Report Type: Report from Study
  Country: NL (occurrence: NL)
  Receive Date: 20140131
  Receipt Date: 20140131
  Transmission Date: 20141002
  Serious: Yes (Death)
  Sender: FDA-Public Use
  Company Number: NL-ABBVIE-14P-114-1195369-00

PATIENT
  Age: 72 Year
  Sex: Female

DRUGS (1)
  1. HUMIRA [Suspect]
     Indication: RHEUMATOID ARTHRITIS
     Route: 058
     Dates: start: 20110927

REACTIONS (6)
  - Death [Fatal]
  - Abdominal pain [Unknown]
  - Bone pain [Unknown]
  - Strangury [Unknown]
  - Palpitations [Unknown]
  - Cystitis noninfective [Unknown]
